FAERS Safety Report 12231807 (Version 3)
Quarter: 2016Q2

REPORT INFORMATION
  Report Type: Spontaneous
  Country: US (occurrence: US)
  Receive Date: 20160401
  Receipt Date: 20160517
  Transmission Date: 20160815
  Serious: Yes (Hospitalization)
  Sender: FDA-Public Use
  Company Number: US-OTSUKA-2016_007050

PATIENT
  Age: 37 Year
  Sex: Female

DRUGS (5)
  1. LITHIUM. [Concomitant]
     Active Substance: LITHIUM
     Indication: PRODUCT USED FOR UNKNOWN INDICATION
     Dosage: UNK
     Route: 065
  2. ABILIFY MAINTENA [Suspect]
     Active Substance: ARIPIPRAZOLE
     Indication: SCHIZOPHRENIA
  3. COGENTIN [Suspect]
     Active Substance: BENZTROPINE MESYLATE
     Indication: PROPHYLAXIS
     Dosage: UNK
     Route: 065
  4. WELLBUTRIN [Concomitant]
     Active Substance: BUPROPION HYDROCHLORIDE
     Indication: PRODUCT USED FOR UNKNOWN INDICATION
     Dosage: UNK
     Route: 065
  5. ABILIFY MAINTENA [Suspect]
     Active Substance: ARIPIPRAZOLE
     Indication: DEPRESSION
     Dosage: 400 MG, QM
     Route: 030
     Dates: start: 2015

REACTIONS (19)
  - Staring [Unknown]
  - Diplopia [Unknown]
  - Depression [Not Recovered/Not Resolved]
  - Hallucination, auditory [Unknown]
  - Insomnia [Unknown]
  - Off label use [Unknown]
  - Accidental overdose [Unknown]
  - Weight increased [Unknown]
  - Hospitalisation [Recovered/Resolved]
  - Abdominal pain upper [Unknown]
  - Malaise [Unknown]
  - Dizziness [Unknown]
  - Lacrimation increased [Unknown]
  - Vision blurred [Unknown]
  - Feeling abnormal [Not Recovered/Not Resolved]
  - Movement disorder [Unknown]
  - Mental impairment [Unknown]
  - Gastroenteritis viral [Not Recovered/Not Resolved]
  - Constipation [Unknown]

NARRATIVE: CASE EVENT DATE: 2015
